FAERS Safety Report 16532938 (Version 1)
Quarter: 2019Q3

REPORT INFORMATION
  Report Type: Spontaneous
  Country: US (occurrence: US)
  Receive Date: 20190523
  Receipt Date: 20190523
  Transmission Date: 20191004
  Serious: No
  Sender: FDA-Public Use
  Company Number: None

PATIENT
  Age: 32 Year
  Sex: Female

DRUGS (2)
  1. RASUVO [Suspect]
     Active Substance: METHOTREXATE SODIUM
     Indication: SYSTEMIC LUPUS ERYTHEMATOSUS
     Dosage: INJECT 12.5MG (0.25ML) SUBCUTANEOUSLY  ONCE WEEKLY ON THE SAME DAY EACH WEEK  AS DIRECTED
     Route: 058
     Dates: start: 201902
  2. RASUVO [Suspect]
     Active Substance: METHOTREXATE SODIUM
     Indication: ARTHRALGIA
     Dosage: INJECT 12.5MG (0.25ML) SUBCUTANEOUSLY  ONCE WEEKLY ON THE SAME DAY EACH WEEK  AS DIRECTED
     Route: 058
     Dates: start: 201902

REACTIONS (1)
  - Contusion [None]
